FAERS Safety Report 5755946-9 (Version None)
Quarter: 2008Q2

REPORT INFORMATION
  Report Type: 
  Country: None (occurrence: None)
  Receive Date: 20080602
  Receipt Date: 20080529
  Transmission Date: 20081010
  Serious: Yes (Life-Threatening)
  Sender: FDA-Public Use
  Company Number: FR-ASTRAZENECA-2008CG00826

PATIENT
  Age: 27602 Day
  Sex: Male

DRUGS (12)
  1. NEXIUM [Suspect]
     Indication: GASTRITIS
     Route: 048
     Dates: start: 20080209, end: 20080408
  2. NEXIUM [Suspect]
     Route: 048
     Dates: start: 20080411, end: 20080413
  3. MOPRAL [Suspect]
     Indication: GASTRITIS
     Route: 048
     Dates: start: 20080426, end: 20080430
  4. BRICANYL [Concomitant]
     Route: 055
  5. AMIODARONE HCL [Concomitant]
  6. OMIX [Concomitant]
  7. ZOLPIDEM [Concomitant]
  8. TIAPRIDAL [Concomitant]
  9. LACTULOSE [Concomitant]
  10. ATROVENT [Concomitant]
  11. OFLOCET [Concomitant]
     Indication: BRONCHITIS
     Dates: end: 20080330
  12. AUGMENTIN '125' [Concomitant]
     Indication: BRONCHITIS
     Dates: end: 20080330

REACTIONS (2)
  - HYPONATRAEMIA [None]
  - RESPIRATORY DISTRESS [None]
